FAERS Safety Report 19777238 (Version 7)
Quarter: 2022Q1

REPORT INFORMATION
  Report Type: Report from Study
  Country: US (occurrence: US)
  Receive Date: 20210902
  Receipt Date: 20220103
  Transmission Date: 20220423
  Serious: No
  Sender: FDA-Public Use
  Company Number: NVSC2021US197842

PATIENT
  Age: 45 Year
  Sex: Female

DRUGS (2)
  1. KESIMPTA [Suspect]
     Active Substance: OFATUMUMAB
     Indication: Relapsing-remitting multiple sclerosis
     Dosage: 20 MG, QMO (BENEATH THE SKIN,USUALLY VIA INJECTION)
     Route: 058
     Dates: start: 20210710
  2. KESIMPTA [Suspect]
     Active Substance: OFATUMUMAB
     Dosage: UNK
     Route: 065

REACTIONS (6)
  - Lymphadenopathy [Not Recovered/Not Resolved]
  - Migraine [Not Recovered/Not Resolved]
  - Limb discomfort [Not Recovered/Not Resolved]
  - Abdominal pain [Unknown]
  - Malaise [Unknown]
  - Fall [Not Recovered/Not Resolved]

NARRATIVE: CASE EVENT DATE: 20210829
